FAERS Safety Report 6401196-2 (Version None)
Quarter: 2009Q4

REPORT INFORMATION
  Report Type: 
  Country: None (occurrence: None)
  Receive Date: 20091015
  Receipt Date: 20091006
  Transmission Date: 20100525
  Serious: Yes (Other)
  Sender: FDA-Public Use
  Company Number: GB-JNJFOC-20091001795

PATIENT
  Age: 23 Year
  Sex: Female

DRUGS (17)
  1. RISPERDAL [Suspect]
     Route: 065
  2. RISPERDAL [Suspect]
     Indication: BIPOLAR DISORDER
     Route: 065
  3. RISPERIDONE [Suspect]
     Indication: BIPOLAR DISORDER
     Route: 048
  4. DEPAKENE [Suspect]
     Route: 065
  5. DEPAKENE [Suspect]
     Indication: BIPOLAR DISORDER
     Route: 065
  6. QUETIAPINE [Suspect]
     Route: 065
  7. QUETIAPINE [Suspect]
     Indication: BIPOLAR DISORDER
     Route: 065
  8. HALOPERIDOL [Concomitant]
     Indication: DRUG USE FOR UNKNOWN INDICATION
     Route: 065
  9. BIPERIDEN HYDROCHLORIDE TAB [Concomitant]
     Indication: DRUG USE FOR UNKNOWN INDICATION
     Route: 065
  10. CLONAZEPAM [Concomitant]
     Indication: DRUG USE FOR UNKNOWN INDICATION
     Route: 065
  11. ALPRAZOLAM [Concomitant]
     Indication: DRUG USE FOR UNKNOWN INDICATION
     Route: 065
  12. PAROXETINE [Concomitant]
     Indication: DRUG USE FOR UNKNOWN INDICATION
     Route: 065
  13. PROMETHAZINE [Concomitant]
     Indication: DRUG USE FOR UNKNOWN INDICATION
     Route: 065
  14. SULPIRIDE [Concomitant]
     Indication: DRUG USE FOR UNKNOWN INDICATION
     Route: 065
  15. VALPROATE ION [Concomitant]
     Indication: DRUG USE FOR UNKNOWN INDICATION
     Route: 065
  16. ZOPICLONE [Concomitant]
     Indication: DRUG USE FOR UNKNOWN INDICATION
     Route: 065
  17. ZUCLOPENTHIXOL [Concomitant]
     Indication: DRUG USE FOR UNKNOWN INDICATION
     Route: 065

REACTIONS (4)
  - DRUG LEVEL ABOVE THERAPEUTIC [None]
  - GALACTORRHOEA [None]
  - TARDIVE DYSKINESIA [None]
  - WEIGHT INCREASED [None]
